FAERS Safety Report 5420947-7 (Version None)
Quarter: 2007Q3

REPORT INFORMATION
  Report Type: 
  Country: None (occurrence: None)
  Receive Date: 20070817
  Receipt Date: 20070817
  Transmission Date: 20080115
  Serious: Yes (Hospitalization)
  Sender: FDA-Public Use
  Company Number: None

PATIENT
  Age: 42 Year
  Sex: Male

DRUGS (3)
  1. ALPRAZOLAM [Suspect]
     Indication: ANXIETY
     Dosage: 1MG EVERY DAY PO
     Route: 048
     Dates: start: 20070427, end: 20070813
  2. ALPRAZOLAM [Suspect]
     Indication: PAIN
     Dosage: 1MG EVERY DAY PO
     Route: 048
     Dates: start: 20070427, end: 20070813
  3. ACETAMINOPHEN AND HYDROCODONE BITARTRATE [Suspect]
     Dosage: 1TAB PRN PO
     Route: 048
     Dates: start: 20070622, end: 20070813

REACTIONS (2)
  - DIZZINESS [None]
  - SYNCOPE [None]
